FAERS Safety Report 7795524-3 (Version None)
Quarter: 2011Q4

REPORT INFORMATION
  Report Type: 
  Country: None (occurrence: None)
  Receive Date: 20111004
  Receipt Date: 20110927
  Transmission Date: 20120403
  Serious: Yes (Other)
  Sender: FDA-Public Use
  Company Number: IT-ALEXION PHARMACEUTICALS INC.-A201101475

PATIENT
  Sex: Female

DRUGS (8)
  1. SOLIRIS [Suspect]
     Indication: HAEMOLYTIC URAEMIC SYNDROME
     Dosage: 900 MG, QW
     Dates: start: 20110314
  2. SOLIRIS [Suspect]
     Dosage: 100 MG, SINGLE
     Route: 042
     Dates: start: 20110621, end: 20110621
  3. SOLIRIS [Suspect]
     Dosage: 600 MG, SINGLE
     Route: 042
     Dates: start: 20110705, end: 20110705
  4. SOLIRIS [Suspect]
     Dosage: 1 ML, SINGLE
     Route: 023
     Dates: start: 20110614, end: 20110614
  5. SOLIRIS [Suspect]
     Dosage: 1200 MG, Q2W
     Route: 042
  6. SOLIRIS [Suspect]
     Dosage: 900 MG, SINGLE
     Route: 042
     Dates: start: 20110712, end: 20110712
  7. SOLIRIS [Suspect]
     Dosage: 1200 MG, SINGLE
     Route: 042
     Dates: start: 20110720, end: 20110720
  8. SOLIRIS [Suspect]
     Dosage: 300 MG, SINGLE
     Route: 042
     Dates: start: 20110628

REACTIONS (4)
  - ARTHRITIS [None]
  - HYPERSENSITIVITY [None]
  - DIARRHOEA [None]
  - MYALGIA [None]
